FAERS Safety Report 7610082-1 (Version None)
Quarter: 2011Q3

REPORT INFORMATION
  Report Type: 
  Country: None (occurrence: None)
  Receive Date: 20110715
  Receipt Date: 20110706
  Transmission Date: 20111222
  Serious: Yes (Hospitalization)
  Sender: FDA-Public Use
  Company Number: US-BIOGENIDEC-2010BI005280

PATIENT
  Age: 66 Year
  Sex: Female
  Weight: 68 kg

DRUGS (13)
  1. AVONEX [Suspect]
     Route: 030
     Dates: start: 20090925, end: 20101001
  2. XANAX [Concomitant]
  3. RISPERIDONE [Concomitant]
  4. PRAVASTATIN [Concomitant]
  5. MIRAPEX [Concomitant]
  6. VESICARE [Concomitant]
  7. AVONEX [Suspect]
     Indication: MULTIPLE SCLEROSIS
     Route: 030
     Dates: start: 20060420, end: 20070805
  8. FLEXERIL [Concomitant]
  9. RANITIDINE [Concomitant]
  10. MOBIC [Concomitant]
  11. LORTAB [Concomitant]
  12. MULTI-VITAMIN [Concomitant]
  13. LEXAPRO [Concomitant]

REACTIONS (6)
  - DEMENTIA [None]
  - ELECTROCARDIOGRAM POOR R-WAVE PROGRESSION [None]
  - LACERATION [None]
  - OSTEOARTHRITIS [None]
  - FALL [None]
  - MULTIPLE SCLEROSIS RELAPSE [None]
